FAERS Safety Report 18236494 (Version 1)
Quarter: 2020Q3

REPORT INFORMATION
  Report Type: Other
  Country: BE (occurrence: BE)
  Receive Date: 20200907
  Receipt Date: 20200907
  Transmission Date: 20201103
  Serious: Yes (Hospitalization)
  Sender: FDA-Public Use
  Company Number: BE-ROCHE-2669093

PATIENT
  Age: 19 Year
  Sex: Female

DRUGS (10)
  1. PRIVIGEN [Concomitant]
     Active Substance: HUMAN IMMUNOGLOBULIN G
     Route: 042
  2. ROACTEMRA [Suspect]
     Active Substance: TOCILIZUMAB
     Indication: COVID-19
     Route: 042
  3. DOBUTAMINE [Concomitant]
     Active Substance: DOBUTAMINE HYDROCHLORIDE
     Dates: start: 20200421, end: 20200428
  4. CEFTRIAXONE. [Concomitant]
     Active Substance: CEFTRIAXONE
     Indication: ACUTE RESPIRATORY DISTRESS SYNDROME
     Dates: start: 20200417, end: 20200427
  5. HYDROXYCHLOROQUINE [Concomitant]
     Active Substance: HYDROXYCHLOROQUINE
     Indication: COVID-19
     Dosage: 400 MG BID DURING 2 DAYS AND THEN 200 MG
     Dates: start: 20200421, end: 20200426
  6. HYDROXYCHLOROQUINE [Concomitant]
     Active Substance: HYDROXYCHLOROQUINE
     Indication: ACUTE RESPIRATORY DISTRESS SYNDROME
  7. COLCHICINE. [Concomitant]
     Active Substance: COLCHICINE
     Dates: start: 20200421, end: 20200428
  8. AZITHROMYCINE [Concomitant]
     Active Substance: AZITHROMYCIN
     Dosage: 500 MG ON DAY 1 THAN 250 MG/DAY
     Dates: start: 20200421, end: 20200426
  9. ROACTEMRA [Suspect]
     Active Substance: TOCILIZUMAB
     Indication: CYTOKINE STORM
  10. CEFTRIAXONE. [Concomitant]
     Active Substance: CEFTRIAXONE
     Indication: DISTRIBUTIVE SHOCK

REACTIONS (3)
  - Coronary artery aneurysm [Recovering/Resolving]
  - Off label use [Unknown]
  - Intentional product use issue [Unknown]
